FAERS Safety Report 6066493-1 (Version None)
Quarter: 2009Q1

REPORT INFORMATION
  Report Type: 
  Country: None (occurrence: None)
  Receive Date: 20090205
  Receipt Date: 20090127
  Transmission Date: 20090719
  Serious: Yes (Death, Disabling)
  Sender: FDA-Public Use
  Company Number: US-BAYER-US-2007-023287

PATIENT
  Age: 20 Year
  Sex: Male

DRUGS (2)
  1. MAGNEVIST [Suspect]
     Indication: NUCLEAR MAGNETIC RESONANCE IMAGING
     Dates: start: 20060121, end: 20060121
  2. OMNISCAN [Suspect]
     Indication: ANGIOGRAM
     Dates: start: 20050601, end: 20050601

REACTIONS (6)
  - ABASIA [None]
  - ANXIETY [None]
  - EMOTIONAL DISTRESS [None]
  - MOBILITY DECREASED [None]
  - NEPHROGENIC SYSTEMIC FIBROSIS [None]
  - PAIN [None]
